FAERS Safety Report 13882232 (Version 6)
Quarter: 2018Q4

REPORT INFORMATION
  Report Type: Spontaneous
  Country: FI (occurrence: FI)
  Receive Date: 20170818
  Receipt Date: 20181024
  Transmission Date: 20190204
  Serious: Yes (Life-Threatening, Hospitalization, Other)
  Sender: FDA-Public Use
  Company Number: FI-SA-2017SA148091

PATIENT
  Age: 36 Year
  Sex: Female

DRUGS (17)
  1. BACLOFEN. [Concomitant]
     Active Substance: BACLOFEN
     Dosage: UNK UNK,UNK
     Route: 037
  2. MIRTAZAPINE. [Concomitant]
     Active Substance: MIRTAZAPINE
     Dosage: 1/4 TABLET ONCE PER DAY IN EVENING
     Route: 065
     Dates: start: 20140508
  3. DULOXETINE. [Concomitant]
     Active Substance: DULOXETINE
  4. SIRDALUD [Concomitant]
     Active Substance: TIZANIDINE
  5. PANADOL [Concomitant]
     Active Substance: ACETAMINOPHEN
     Dosage: UNK UNK, PRN
  6. BOTOX [Concomitant]
     Active Substance: ONABOTULINUMTOXINA
  7. FOLVITE [FOLIC ACID] [Concomitant]
  8. LEMTRADA [Suspect]
     Active Substance: ALEMTUZUMAB
     Indication: MULTIPLE SCLEROSIS
     Dosage: 12 MG,QD
     Route: 041
     Dates: start: 20150817, end: 20150821
  9. LEMTRADA [Suspect]
     Active Substance: ALEMTUZUMAB
     Dosage: 12 MG,QD
     Route: 041
     Dates: start: 20160824, end: 20160826
  10. ESCITALOPRAM [Concomitant]
     Active Substance: ESCITALOPRAM OXALATE
     Dosage: UNK UNK,UNK
     Route: 065
  11. OPAMOX [Concomitant]
     Active Substance: OXAZEPAM
     Dosage: UNK UNK,UNK
     Route: 065
  12. SOMAC CONTROL [Concomitant]
     Active Substance: PANTOPRAZOLE SODIUM
     Dosage: UNK UNK, PRN
  13. CALCICHEW [Concomitant]
     Active Substance: CALCIUM CARBONATE
     Dosage: UNK UNK,UNK
     Route: 065
  14. FAMPYRA [Concomitant]
     Active Substance: DALFAMPRIDINE
     Dosage: UNK UNK,UNK
     Route: 065
  15. FOLIVER [Concomitant]
     Dosage: UNK UNK,UNK
     Route: 065
  16. DUACT [Concomitant]
     Active Substance: ACRIVASTINE\PSEUDOEPHEDRINE HYDROCHLORIDE
  17. MELATONIN [Concomitant]
     Active Substance: MELATONIN
     Dosage: UNK UNK,UNK
     Route: 065

REACTIONS (14)
  - Platelet count decreased [Recovered/Resolved]
  - Blood lactate dehydrogenase increased [Recovered/Resolved]
  - ADAMTS13 activity decreased [Recovered/Resolved]
  - Thrombotic microangiopathy [Recovered/Resolved]
  - White blood cell count decreased [Unknown]
  - Cerebrovascular accident [Recovered/Resolved]
  - Escherichia test positive [Unknown]
  - C-reactive protein increased [Recovered/Resolved]
  - Thrombotic thrombocytopenic purpura [Recovered/Resolved]
  - Blood bilirubin increased [Recovered/Resolved]
  - Cerebral infarction [Recovered/Resolved]
  - Cerebral artery embolism [Recovered/Resolved]
  - Splenomegaly [Unknown]
  - Haemoglobin decreased [Recovered/Resolved]

NARRATIVE: CASE EVENT DATE: 201705
